FAERS Safety Report 6402532-3 (Version None)
Quarter: 2009Q4

REPORT INFORMATION
  Report Type: 
  Country: None (occurrence: None)
  Receive Date: 20091015
  Receipt Date: 20091001
  Transmission Date: 20100525
  Serious: Yes (Disabling)
  Sender: FDA-Public Use
  Company Number: US-GENENTECH-291405

PATIENT
  Sex: Male
  Weight: 57.7 kg

DRUGS (7)
  1. SOMATROPIN [Suspect]
     Indication: RENAL FAILURE CHRONIC
     Dosage: 5.4 MG, UNK
     Dates: start: 20051109
  2. SOMATROPIN [Suspect]
  3. ABILIFY [Concomitant]
     Indication: DRUG USE FOR UNKNOWN INDICATION
     Dosage: 2.5 MG, QPM
     Route: 048
  4. CONCERTA [Concomitant]
     Indication: DRUG USE FOR UNKNOWN INDICATION
     Dosage: 36 MG, QAM
     Route: 048
  5. ENALAPRIL MALEATE [Concomitant]
     Indication: DRUG USE FOR UNKNOWN INDICATION
     Dosage: 10 MG, QAM
     Route: 048
  6. IRON [Concomitant]
     Indication: DRUG USE FOR UNKNOWN INDICATION
     Dosage: 65 MG, QAM
     Route: 048
  7. ZYRTEC [Concomitant]
     Indication: DRUG USE FOR UNKNOWN INDICATION
     Dosage: 10 MG, QAM
     Route: 048

REACTIONS (2)
  - ABNORMAL BEHAVIOUR [None]
  - MOOD SWINGS [None]
